FAERS Safety Report 10639167 (Version 1)
Quarter: 2014Q4

REPORT INFORMATION
  Report Type: Spontaneous
  Country: AR (occurrence: AR)
  Receive Date: 20141208
  Receipt Date: 20141208
  Transmission Date: 20150529
  Serious: Yes (Hospitalization)
  Sender: FDA-Public Use
  Company Number: AR-BIOMARINAP-AR-2014-104849

PATIENT
  Sex: Female
  Weight: 18 kg

DRUGS (1)
  1. VIMIZIM [Suspect]
     Active Substance: ELOSULFASE ALFA
     Indication: MUCOPOLYSACCHARIDOSIS IV
     Dosage: 36 MG, QW
     Route: 042
     Dates: start: 20141030

REACTIONS (3)
  - Headache [Unknown]
  - Spinal cord compression [Unknown]
  - Dizziness [Unknown]
